FAERS Safety Report 21502613 (Version 2)
Quarter: 2022Q4

REPORT INFORMATION
  Report Type: Spontaneous
  Country: IN (occurrence: IN)
  Receive Date: 20221025
  Receipt Date: 20221025
  Transmission Date: 20230112
  Serious: Yes (Death, Life-Threatening, Other)
  Sender: FDA-Public Use
  Company Number: IN-PFIZER INC-202201228690

PATIENT
  Age: 57 Year
  Sex: Male

DRUGS (1)
  1. METHOTREXATE SODIUM [Suspect]
     Active Substance: METHOTREXATE SODIUM
     Indication: Psoriasis
     Dosage: UNK

REACTIONS (12)
  - Overdose [Fatal]
  - Toxicity to various agents [Fatal]
  - Sepsis [Fatal]
  - Renal function test abnormal [Fatal]
  - Liver function test abnormal [Fatal]
  - Skin erosion [Fatal]
  - Skin ulcer haemorrhage [Fatal]
  - Mouth ulceration [Fatal]
  - Genital ulceration [Fatal]
  - Anaemia [Fatal]
  - Thrombocytopenia [Fatal]
  - Leukopenia [Fatal]
